FAERS Safety Report 10714840 (Version 2)
Quarter: 2015Q1

REPORT INFORMATION
  Report Type: Spontaneous
  Country: US (occurrence: US)
  Receive Date: 20150115
  Receipt Date: 20150305
  Transmission Date: 20150721
  Serious: Yes (Death, Hospitalization, Other)
  Sender: FDA-Public Use
  Company Number: US-ARIAD-2014US003623

PATIENT

DRUGS (3)
  1. ICLUSIG [Suspect]
     Active Substance: PONATINIB
     Indication: CHRONIC MYELOID LEUKAEMIA
     Dosage: 45 MG, QD
     Route: 048
     Dates: start: 20140806, end: 20140816
  2. ICLUSIG [Suspect]
     Active Substance: PONATINIB
     Dosage: 15 MG, QD
     Route: 048
     Dates: start: 20140826, end: 20140905
  3. METRONIDAZOLE. [Concomitant]
     Active Substance: METRONIDAZOLE
     Indication: CLOSTRIDIUM DIFFICILE INFECTION
     Dosage: 500 MG, UNK
     Route: 048

REACTIONS (10)
  - Neoplasm progression [Fatal]
  - Acute hepatic failure [Fatal]
  - Effusion [None]
  - Fluid overload [Recovered/Resolved]
  - Cardiac disorder [Unknown]
  - Intestinal dilatation [None]
  - Fatigue [Not Recovered/Not Resolved]
  - Penile oedema [None]
  - Asthenia [Not Recovered/Not Resolved]
  - Oedema [None]

NARRATIVE: CASE EVENT DATE: 20140905
